FAERS Safety Report 16234872 (Version 1)
Quarter: 2019Q2

REPORT INFORMATION
  Report Type: Spontaneous
  Country: US (occurrence: US)
  Receive Date: 20190424
  Receipt Date: 20190424
  Transmission Date: 20190711
  Serious: No
  Sender: FDA-Public Use
  Company Number: US-VERTEX PHARMACEUTICALS-2018-008135

PATIENT
  Age: 34 Year
  Sex: Female

DRUGS (25)
  1. CETIRIZINE [Concomitant]
     Active Substance: CETIRIZINE HYDROCHLORIDE
  2. VITAMIN C [Concomitant]
     Active Substance: ASCORBIC ACID
  3. PANCREAZE                          /00150201/ [Concomitant]
  4. TRAMADOL. [Concomitant]
     Active Substance: TRAMADOL
  5. URSODIOL. [Concomitant]
     Active Substance: URSODIOL
  6. POLYETHYLENE GLYCOL [Concomitant]
     Active Substance: POLYETHYLENE GLYCOLS
  7. AZITHROMYCIN ANHYDROUS. [Concomitant]
     Active Substance: AZITHROMYCIN ANHYDROUS
  8. ONDANSETRON [Concomitant]
     Active Substance: ONDANSETRON
  9. VITAMIN A                          /00056001/ [Concomitant]
     Active Substance: RETINOL
  10. CAYSTON [Concomitant]
     Active Substance: AZTREONAM
  11. CYCLOBENZAPRINE. [Concomitant]
     Active Substance: CYCLOBENZAPRINE
  12. DIPHENHYDRAMINE. [Concomitant]
     Active Substance: DIPHENHYDRAMINE
  13. OMEPRAZOLE. [Concomitant]
     Active Substance: OMEPRAZOLE
  14. STERILE WATER [Concomitant]
     Active Substance: WATER
  15. ZINC. [Concomitant]
     Active Substance: ZINC
  16. ALBUTEROL SULFATE. [Concomitant]
     Active Substance: ALBUTEROL SULFATE
  17. ALPRAZOLAM. [Concomitant]
     Active Substance: ALPRAZOLAM
  18. ESTRADIOL. [Concomitant]
     Active Substance: ESTRADIOL
  19. MEPHYTON [Concomitant]
     Active Substance: PHYTONADIONE
  20. COLISTIMETHATE                     /00013204/ [Concomitant]
     Active Substance: COLISTIMETHATE SODIUM
  21. SYMDEKO [Suspect]
     Active Substance: IVACAFTOR\TEZACAFTOR
     Indication: CYSTIC FIBROSIS
     Dosage: 100MG TEZACAFTOR/150MG IVACAFTOR AM; 150MG IVACAFTOR PM
     Route: 048
     Dates: start: 20181012
  22. VITAMIN E                          /00110501/ [Concomitant]
     Active Substance: TOCOPHEROL
  23. VITAMIN D3 [Concomitant]
     Active Substance: CHOLECALCIFEROL
  24. HYDROMORPHONE [Concomitant]
     Active Substance: HYDROMORPHONE
  25. AQUADEKS                           /07679501/ [Concomitant]
     Active Substance: MINERALS\VITAMINS

REACTIONS (3)
  - Ear pain [Not Recovered/Not Resolved]
  - Headache [Not Recovered/Not Resolved]
  - Sinus congestion [Recovering/Resolving]

NARRATIVE: CASE EVENT DATE: 201810
